FAERS Safety Report 15109566 (Version 7)
Quarter: 2021Q2

REPORT INFORMATION
  Report Type: Spontaneous
  Country: US (occurrence: US)
  Receive Date: 20180705
  Receipt Date: 20210510
  Transmission Date: 20210716
  Serious: Yes (Other)
  Sender: FDA-Public Use
  Company Number: US-PFIZER INC-2018270569

PATIENT
  Age: 69 Year
  Sex: Female
  Weight: 81.65 kg

DRUGS (1)
  1. IBRANCE [Suspect]
     Active Substance: PALBOCICLIB
     Indication: BREAST CANCER FEMALE
     Dosage: 125 MG, CYCLIC (21 DAYS THEN OFF 7 DAYS)
     Route: 048

REACTIONS (4)
  - Dementia Alzheimer^s type [Unknown]
  - Hypoacusis [Unknown]
  - Epistaxis [Recovered/Resolved]
  - Memory impairment [Recovering/Resolving]
